FAERS Safety Report 9819729 (Version 1)
Quarter: 2014Q1

REPORT INFORMATION
  Report Type: Report from Study
  Country: US (occurrence: US)
  Receive Date: 20140116
  Receipt Date: 20140116
  Transmission Date: 20141002
  Serious: Yes (Death)
  Sender: FDA-Public Use
  Company Number: US-ROCHE-1334051

PATIENT
  Sex: Female

DRUGS (11)
  1. AVASTIN [Suspect]
     Indication: BREAST CANCER
     Route: 042
     Dates: start: 20091218
  2. AVASTIN [Suspect]
     Indication: MALIGNANT ASCITES
     Route: 042
     Dates: start: 20100108
  3. AVASTIN [Suspect]
     Route: 042
     Dates: start: 20100226
  4. AVASTIN [Suspect]
     Route: 042
     Dates: start: 20100319
  5. AVASTIN [Suspect]
     Route: 042
     Dates: start: 20100201
  6. CAPECITABINE [Suspect]
     Indication: BREAST CANCER
     Route: 065
  7. CAPECITABINE [Suspect]
     Indication: MALIGNANT ASCITES
  8. BENADRYL (UNITED STATES) [Concomitant]
     Route: 048
  9. TYLENOL [Concomitant]
     Route: 048
  10. ZOFRAN [Concomitant]
     Route: 042
  11. DECADRON [Concomitant]
     Route: 042

REACTIONS (1)
  - Death [Fatal]
